FAERS Safety Report 6045109-4 (Version None)
Quarter: 2009Q1

REPORT INFORMATION
  Report Type: 
  Country: None (occurrence: None)
  Receive Date: 20090121
  Receipt Date: 20090113
  Transmission Date: 20090719
  Serious: Yes (Other)
  Sender: FDA-Public Use
  Company Number: US-BIOGENIDEC-2009BI001600

PATIENT
  Age: 50 Year
  Sex: Female

DRUGS (1)
  1. TYSABRI [Suspect]
     Indication: MULTIPLE SCLEROSIS
     Route: 042
     Dates: start: 20080812

REACTIONS (6)
  - ATAXIA [None]
  - CONVULSION [None]
  - DEPRESSION [None]
  - MIGRAINE [None]
  - SPEECH DISORDER [None]
  - TENDONITIS [None]
